FAERS Safety Report 11754885 (Version 1)
Quarter: 2015Q4

REPORT INFORMATION
  Report Type: Spontaneous
  Country: US (occurrence: None)
  Receive Date: 20151118
  Receipt Date: 20151118
  Transmission Date: 20160304
  Serious: No
  Sender: FDA-Public Use
  Company Number: None

PATIENT
  Age: 60 Year
  Sex: Female
  Weight: 71.22 kg

DRUGS (5)
  1. LEVOCETIRIZINE [Concomitant]
     Active Substance: LEVOCETIRIZINE
  2. BIOTIN [Concomitant]
     Active Substance: BIOTIN
  3. HYDROCODONE/ACETAMINOPHEN [Suspect]
     Active Substance: ACETAMINOPHEN\HYDROCODONE
     Indication: PROCEDURAL PAIN
     Dosage: 1 TABLET EVERY 4-6 HOURS AS NEEDED BYMOUTH
     Route: 048
     Dates: start: 20151116, end: 20151116
  4. ARMOUR THYROID [Concomitant]
     Active Substance: THYROID, PORCINE\THYROID, UNSPECIFIED
  5. CLEAVITE-CLA K-105 [Concomitant]

REACTIONS (1)
  - Pruritus generalised [None]

NARRATIVE: CASE EVENT DATE: 20151116
